FAERS Safety Report 24138753 (Version 1)
Quarter: 2024Q3

REPORT INFORMATION
  Report Type: Report from Study
  Country: JP (occurrence: JP)
  Receive Date: 20240725
  Receipt Date: 20240725
  Transmission Date: 20241016
  Serious: Yes (Other)
  Sender: TAKEDA
  Company Number: JP-TAKEDA-2024TJP011008

PATIENT
  Age: 9 Year
  Sex: Male
  Weight: 27 kg

DRUGS (12)
  1. LISDEXAMFETAMINE DIMESYLATE [Suspect]
     Active Substance: LISDEXAMFETAMINE DIMESYLATE
     Indication: Attention deficit hyperactivity disorder
     Dosage: 30 MILLIGRAM, QD
     Route: 048
     Dates: start: 20231207, end: 20240425
  2. LISDEXAMFETAMINE DIMESYLATE [Suspect]
     Active Substance: LISDEXAMFETAMINE DIMESYLATE
     Dosage: 50 MILLIGRAM, QD
     Route: 048
     Dates: start: 20240426
  3. INTUNIV [Concomitant]
     Active Substance: GUANFACINE HYDROCHLORIDE
     Indication: Attention deficit hyperactivity disorder
     Dosage: 3 MILLIGRAM
     Route: 065
  4. LUVOX [Concomitant]
     Active Substance: FLUVOXAMINE MALEATE
     Dosage: 75 MILLIGRAM
     Route: 065
     Dates: end: 20240116
  5. LUVOX [Concomitant]
     Active Substance: FLUVOXAMINE MALEATE
     Dosage: 12.5 MILLIGRAM
     Route: 065
     Dates: start: 20240201, end: 20240205
  6. LUVOX [Concomitant]
     Active Substance: FLUVOXAMINE MALEATE
     Dosage: 25 MILLIGRAM
     Route: 065
     Dates: start: 20240206, end: 20240222
  7. LUVOX [Concomitant]
     Active Substance: FLUVOXAMINE MALEATE
     Dosage: 37.5 MILLIGRAM
     Route: 065
     Dates: start: 20240223, end: 20240509
  8. LUVOX [Concomitant]
     Active Substance: FLUVOXAMINE MALEATE
     Dosage: 50 MILLIGRAM
     Route: 065
     Dates: start: 20240510, end: 20240523
  9. LUVOX [Concomitant]
     Active Substance: FLUVOXAMINE MALEATE
     Dosage: 75 MILLIGRAM
     Route: 065
     Dates: start: 20240524
  10. QUETIAPINE FUMARATE [Concomitant]
     Active Substance: QUETIAPINE FUMARATE
     Dosage: 25 MILLIGRAM
     Route: 065
  11. LEVOMEPROMAZINE [Concomitant]
     Active Substance: LEVOMEPROMAZINE
     Dosage: 50 MILLIGRAM
     Route: 065
     Dates: end: 20240122
  12. LEVOMEPROMAZINE [Concomitant]
     Active Substance: LEVOMEPROMAZINE
     Dosage: 75 MILLIGRAM
     Route: 065
     Dates: start: 20240124

REACTIONS (1)
  - Autism spectrum disorder [Not Recovered/Not Resolved]

NARRATIVE: CASE EVENT DATE: 20231226
